FAERS Safety Report 5351078-2 (Version None)
Quarter: 2007Q2

REPORT INFORMATION
  Report Type: 
  Country: None (occurrence: None)
  Receive Date: 20070608
  Receipt Date: 20070529
  Transmission Date: 20071010
  Serious: Yes (Life-Threatening, Hospitalization, Other)
  Sender: FDA-Public Use
  Company Number: US-PFIZER INC-2007005158

PATIENT
  Age: 62 Year
  Sex: Male
  Weight: 123.8 kg

DRUGS (9)
  1. EXUBERA [Suspect]
     Indication: DIABETES MELLITUS
     Route: 055
  2. INSULIN [Concomitant]
  3. ACTOS [Concomitant]
     Route: 048
  4. GEMFIBROZIL [Concomitant]
     Route: 048
  5. AVAPRO [Concomitant]
     Route: 048
  6. ZOCOR [Concomitant]
     Route: 048
  7. ACETYLSALICYLIC ACID SRT [Concomitant]
     Route: 048
  8. ATENOLOL [Concomitant]
     Route: 048
  9. LANOXIN [Concomitant]
     Route: 048

REACTIONS (2)
  - CARDIAC FAILURE CONGESTIVE [None]
  - MALAISE [None]
